FAERS Safety Report 7045592-1 (Version None)
Quarter: 2010Q4

REPORT INFORMATION
  Report Type: 
  Country: None (occurrence: None)
  Receive Date: 20101014
  Receipt Date: 20101005
  Transmission Date: 20110411
  Serious: Yes (Other)
  Sender: FDA-Public Use
  Company Number: US-ROCHE-731674

PATIENT
  Age: 11 Year
  Sex: Female

DRUGS (2)
  1. ACCUTANE [Suspect]
     Indication: PRODUCT USED FOR UNKNOWN INDICATION
     Route: 065
  2. ACCUTANE [Suspect]
     Dosage: DOSE INCREASED
     Route: 065
     Dates: end: 20101005

REACTIONS (2)
  - BLINDNESS [None]
  - VISION BLURRED [None]
